FAERS Safety Report 13517212 (Version 1)
Quarter: 2017Q2

REPORT INFORMATION
  Report Type: Spontaneous
  Country: US (occurrence: US)
  Receive Date: 20170505
  Receipt Date: 20170505
  Transmission Date: 20170830
  Serious: Yes (Hospitalization)
  Sender: FDA-Public Use
  Company Number: None

PATIENT
  Age: 73 Year
  Sex: Male
  Weight: 129 kg

DRUGS (10)
  1. HUMALOG [Suspect]
     Active Substance: INSULIN LISPRO
     Indication: DIABETES MELLITUS
     Dosage: DATES OF USE CHRONIC??0-25UNITS  QID AC AND NIGHTLY
     Route: 058
  2. HUMALO [Concomitant]
  3. LIPITOR [Concomitant]
     Active Substance: ATORVASTATIN CALCIUM
  4. COREG [Concomitant]
     Active Substance: CARVEDILOL
  5. ALPHAGAN P [Concomitant]
     Active Substance: BRIMONIDINE TARTRATE
  6. APAP [Concomitant]
     Active Substance: ACETAMINOPHEN
  7. HYDRALAZINE [Concomitant]
     Active Substance: HYDRALAZINE HYDROCHLORIDE
  8. AMLODIPINE [Concomitant]
     Active Substance: AMLODIPINE BESYLATE
  9. COLCHICINE. [Concomitant]
     Active Substance: COLCHICINE
  10. ECOTRIN [Concomitant]
     Active Substance: ASPIRIN

REACTIONS (3)
  - Blood glucose decreased [None]
  - Mental status changes [None]
  - Decreased appetite [None]

NARRATIVE: CASE EVENT DATE: 20161211
